FAERS Safety Report 19996941 (Version 1)
Quarter: 2021Q4

REPORT INFORMATION
  Report Type: Spontaneous
  Country: US (occurrence: US)
  Receive Date: 20211026
  Receipt Date: 20211026
  Transmission Date: 20220303
  Serious: No
  Sender: FDA-Public Use
  Company Number: US-PFIZER INC-202101383715

PATIENT
  Age: 47 Year
  Sex: Female

DRUGS (8)
  1. IBRANCE [Suspect]
     Active Substance: PALBOCICLIB
     Indication: Breast cancer
     Dosage: 125 MG, 21 DAYS ON, 7 DAYS OFF
     Route: 048
     Dates: start: 20210428
  2. AMBIEN [Concomitant]
     Active Substance: ZOLPIDEM TARTRATE
  3. DIFLUCAN [Concomitant]
     Active Substance: FLUCONAZOLE
  4. LUPRON DEPOT-PED [Concomitant]
     Active Substance: LEUPROLIDE ACETATE
  5. TRAMADOL HCL [Concomitant]
     Active Substance: TRAMADOL HYDROCHLORIDE
  6. MONTELUKAST SODIUM [Concomitant]
     Active Substance: MONTELUKAST SODIUM
  7. LORATADINE [Concomitant]
     Active Substance: LORATADINE
  8. LETROZOLE [Concomitant]
     Active Substance: LETROZOLE

REACTIONS (1)
  - Fungal infection [Unknown]

NARRATIVE: CASE EVENT DATE: 20210101
